FAERS Safety Report 7468557-4 (Version None)
Quarter: 2011Q2

REPORT INFORMATION
  Report Type: 
  Country: None (occurrence: None)
  Receive Date: 20110509
  Receipt Date: 20110426
  Transmission Date: 20111010
  Serious: No
  Sender: FDA-Public Use
  Company Number: US-BAYER-2011-037218

PATIENT
  Age: 56 Year
  Sex: Female
  Weight: 79.819 kg

DRUGS (1)
  1. MAGNEVIST [Suspect]
     Indication: NUCLEAR MAGNETIC RESONANCE IMAGING BRAIN
     Dosage: 16 ML, ONCE
     Route: 042
     Dates: start: 20110426, end: 20110426

REACTIONS (2)
  - PRURITUS [None]
  - URTICARIA [None]
